FAERS Safety Report 16811113 (Version 1)
Quarter: 2019Q3

REPORT INFORMATION
  Report Type: Spontaneous
  Country: HU (occurrence: HU)
  Receive Date: 20190916
  Receipt Date: 20190916
  Transmission Date: 20191005
  Serious: Yes (Other)
  Sender: FDA-Public Use
  Company Number: HU-NALPROPION PHARMACEUTICALS INC.-2019-008468

PATIENT

DRUGS (4)
  1. SYNCUMAR [Concomitant]
     Active Substance: ACENOCOUMAROL
     Indication: ANTICOAGULANT THERAPY
     Dosage: 3 MG, QD
     Route: 048
  2. MYSIMBA (NALTREXONE HCL/BUPROPION HCL) PROLONGED-RELEASE TABLETS [Suspect]
     Active Substance: BUPROPION HYDROCHLORIDE\NALTREXONE HYDROCHLORIDE
     Indication: OVERWEIGHT
     Dosage: 1 DF, BID
     Route: 048
     Dates: start: 20190814, end: 20190814
  3. TANYDON [Concomitant]
     Indication: HYPERTENSION
     Dosage: 80 MG, QD
     Route: 048
     Dates: start: 2017
  4. HUMA-PRONOL [Concomitant]
     Indication: TACHYCARDIA
     Dosage: 20 MG, BID
     Route: 048

REACTIONS (3)
  - Dizziness [Recovered/Resolved]
  - Arrhythmia [Recovered/Resolved]
  - Anxiety [Recovered/Resolved]

NARRATIVE: CASE EVENT DATE: 20190814
